FAERS Safety Report 21260063 (Version 1)
Quarter: 2022Q3

REPORT INFORMATION
  Report Type: Spontaneous
  Country: US (occurrence: None)
  Receive Date: 20220825
  Receipt Date: 20220825
  Transmission Date: 20221027
  Serious: Yes (Hospitalization)
  Sender: FDA-Public Use
  Company Number: None

PATIENT
  Age: 51 Year
  Sex: Female
  Weight: 58.5 kg

DRUGS (2)
  1. MAGNESIUM CITRATE [Suspect]
     Active Substance: MAGNESIUM CITRATE
     Indication: Preoperative care
     Dates: start: 20220801, end: 20220801
  2. IMATINIB [Concomitant]
     Active Substance: IMATINIB

REACTIONS (2)
  - Abdominal pain [None]
  - Intra-abdominal fluid collection [None]

NARRATIVE: CASE EVENT DATE: 20220817
